FAERS Safety Report 5298159-X (Version None)
Quarter: 2007Q2

REPORT INFORMATION
  Report Type: 
  Country: None (occurrence: None)
  Receive Date: 20070416
  Receipt Date: 20070412
  Transmission Date: 20071010
  Serious: Yes (Hospitalization)
  Sender: FDA-Public Use
  Company Number: US-ELI_LILLY_AND_COMPANY-US200606002897

PATIENT
  Age: 61 Year
  Sex: Male
  Weight: 66.666 kg

DRUGS (8)
  1. SOMATROPIN [Suspect]
     Indication: HYPOPITUITARISM
     Dosage: 0.1 MG, DAILY (1/D)
     Route: 058
     Dates: start: 20051027, end: 20060328
  2. SOMATROPIN [Suspect]
     Dosage: 0.1 MG, DAILY (1/D)
     Dates: start: 20060601, end: 20060608
  3. SOMATROPIN [Suspect]
     Dosage: 0.2 MG, DAILY (1/D)
     Dates: start: 20060608
  4. LEVOXYL [Concomitant]
     Dosage: 137 UG, DAILY (1/D)
     Dates: start: 20051029
  5. GEODON [Concomitant]
     Dosage: 20 MG, DAILY (1/D)
  6. CORTEF [Concomitant]
     Dosage: 10 MG, EACH MORNING
  7. CALTRATE [Concomitant]
     Dosage: 600 UNK, 2/D
  8. DIOVAN [Concomitant]
     Dosage: 80 MG, DAILY (1/D)

REACTIONS (1)
  - PROSTATE CANCER [None]
